FAERS Safety Report 6608862-4 (Version None)
Quarter: 2010Q1

REPORT INFORMATION
  Report Type: 
  Country: None (occurrence: None)
  Receive Date: 20100301
  Receipt Date: 20100219
  Transmission Date: 20100710
  Serious: Yes (Hospitalization)
  Sender: FDA-Public Use
  Company Number: DE-ABBOTT-10P-062-0627692-00

PATIENT
  Sex: Female
  Weight: 66 kg

DRUGS (5)
  1. ZEMPLAR [Suspect]
     Indication: HYPERPARATHYROIDISM
     Dosage: 2 X 5 MCG PER WEEK
     Route: 042
     Dates: start: 20080324, end: 20080722
  2. BELOC ZOK [Concomitant]
     Indication: HYPERTENSION
     Dosage: 1 TAB OD
     Route: 048
     Dates: end: 20080722
  3. BELOC ZOK [Concomitant]
     Indication: ATRIAL FIBRILLATION
  4. ADDIVIT [Concomitant]
     Indication: HYPOVITAMINOSIS
     Dosage: 1 CAP OD
     Route: 048
     Dates: end: 20080722
  5. SIMVAHEXAL [Concomitant]
     Indication: HYPERCHOLESTEROLAEMIA
     Route: 048
     Dates: end: 20080722

REACTIONS (1)
  - FALL [None]
